FAERS Safety Report 17660734 (Version 1)
Quarter: 2020Q2

REPORT INFORMATION
  Report Type: Spontaneous
  Country: US (occurrence: US)
  Receive Date: 20200410
  Receipt Date: 20200410
  Transmission Date: 20200713
  Serious: Yes (Other)
  Sender: FDA-Public Use
  Company Number: None

PATIENT
  Age: 29 Year
  Sex: Male
  Weight: 180 kg

DRUGS (1)
  1. CEPHALEXIN. [Suspect]
     Active Substance: CEPHALEXIN
     Dates: start: 20191108, end: 20191108

REACTIONS (6)
  - Muscle disorder [None]
  - Mucosal dryness [None]
  - Hypoaesthesia oral [None]
  - Feeling cold [None]
  - Facial paralysis [None]
  - Upper limb fracture [None]
